FAERS Safety Report 8146876-6 (Version None)
Quarter: 2012Q1

REPORT INFORMATION
  Report Type: 
  Country: None (occurrence: None)
  Receive Date: 20120217
  Receipt Date: 20120213
  Transmission Date: 20120608
  Serious: Yes (Other)
  Sender: FDA-Public Use
  Company Number: BR-ABBOTT-12P-020-0904439-00

PATIENT
  Sex: Female

DRUGS (1)
  1. HUMIRA [Suspect]
     Indication: RHEUMATOID ARTHRITIS
     Dates: start: 20090302

REACTIONS (4)
  - HYDROCEPHALUS [None]
  - ISCHAEMIA [None]
  - SYSTEMIC LUPUS ERYTHEMATOSUS [None]
  - DISEASE COMPLICATION [None]
